FAERS Safety Report 4977691-X (Version None)
Quarter: 2006Q2

REPORT INFORMATION
  Report Type: 
  Country: None (occurrence: None)
  Receive Date: 20060420
  Receipt Date: 20051107
  Transmission Date: 20061013
  Serious: Yes (Other)
  Sender: FDA-Public Use
  Company Number: US-GLAXOSMITHKLINE-A0581211A

PATIENT
  Age: 12 Year
  Sex: Female

DRUGS (3)
  1. ESKALITH CR [Suspect]
     Route: 048
     Dates: end: 20050101
  2. LITHIUM CARBONATE [Suspect]
     Dosage: 300MG THREE TIMES PER DAY
     Route: 048
     Dates: start: 20050101
  3. SEROQUEL [Concomitant]

REACTIONS (3)
  - DRUG INEFFECTIVE [None]
  - DRUG LEVEL DECREASED [None]
  - MANIA [None]
